FAERS Safety Report 16438693 (Version 3)
Quarter: 2020Q4

REPORT INFORMATION
  Report Type: Report from Study
  Country: IT (occurrence: IT)
  Receive Date: 20190617
  Receipt Date: 20201211
  Transmission Date: 20210113
  Serious: Yes (Life-Threatening, Hospitalization)
  Sender: FDA-Public Use
  Company Number: IT-ROCHE-2301801

PATIENT
  Age: 79 Year
  Sex: Male
  Weight: 77 kg

DRUGS (54)
  1. VALACICLOVIR [Concomitant]
     Active Substance: VALACYCLOVIR HYDROCHLORIDE
     Dosage: PREVENTION OF VIRAL INFECTION
     Route: 048
     Dates: start: 20190328
  2. PAROXETINE. [Concomitant]
     Active Substance: PAROXETINE
     Dosage: ANTIDEPRESSANT
     Route: 048
     Dates: start: 20190416
  3. FILGRASTIM [Concomitant]
     Active Substance: FILGRASTIM
     Dosage: PREVENTION OF NEUTROPENIA
     Route: 058
     Dates: start: 20190331, end: 20190401
  4. SERTRALINE [Concomitant]
     Active Substance: SERTRALINE HYDROCHLORIDE
     Dosage: ANTIDEPRESSANT
     Route: 048
     Dates: start: 20190323, end: 20190408
  5. LEVOSULPIRIDE [Concomitant]
     Active Substance: LEVOSULPIRIDE
     Dosage: ANTINAUSEA
     Route: 048
     Dates: start: 20190322, end: 20190329
  6. PIPERACILLIN AND TAZOBACTAM [Concomitant]
     Active Substance: PIPERACILLIN SODIUM\TAZOBACTAM SODIUM
     Route: 042
     Dates: start: 20190319, end: 20190323
  7. FUROSEMIDE. [Concomitant]
     Active Substance: FUROSEMIDE
     Dates: start: 20190411, end: 20190411
  8. LEVOSULPIRIDE [Concomitant]
     Active Substance: LEVOSULPIRIDE
     Route: 042
     Dates: start: 20190406, end: 20190406
  9. ACICLOVIR [Concomitant]
     Active Substance: ACYCLOVIR
     Route: 042
     Dates: start: 20190410, end: 20190412
  10. DOXORUBICIN [Suspect]
     Active Substance: DOXORUBICIN
     Indication: DIFFUSE LARGE B-CELL LYMPHOMA
     Dosage: DATE OF MOST RECENT DOSE OF DOXORUBICIN PRIOR TO SAE ONSET: 28/MAR/2019 (99 MG)
     Route: 042
     Dates: start: 20190328
  11. CYCLOPHOSPHAMIDE. [Suspect]
     Active Substance: CYCLOPHOSPHAMIDE
     Indication: DIFFUSE LARGE B-CELL LYMPHOMA
     Dosage: DATE OF MOST RECENT DOSE OF CYCLOPHOSPHAMIDE PRIOR TO SAE ONSET: 28/MAR/2019 (1492 MG)
     Route: 042
     Dates: start: 20190328
  12. ENOXAPARIN [Concomitant]
     Active Substance: ENOXAPARIN
     Dosage: ANTITHROMBOTIC
     Route: 058
     Dates: start: 20190323
  13. PURSENNID [Concomitant]
     Dosage: LAXATIVE
     Route: 048
     Dates: start: 20190419, end: 20190429
  14. NYSTATINE [Concomitant]
     Dosage: ANTIMYCOTIC
     Route: 061
     Dates: start: 20190323, end: 20190408
  15. FOLINATE [Concomitant]
     Active Substance: LEUCOVORIN CALCIUM
     Route: 048
     Dates: start: 20190405, end: 20190407
  16. LEVOSULPIRIDE [Concomitant]
     Active Substance: LEVOSULPIRIDE
     Route: 042
     Dates: start: 20190404, end: 20190405
  17. METHYLPREDNISOLONE. [Suspect]
     Active Substance: METHYLPREDNISOLONE
     Route: 042
     Dates: start: 20190401, end: 20190402
  18. FILGRASTIM [Concomitant]
     Active Substance: FILGRASTIM
     Dosage: PREVENTION OF NEUTROPENIA
     Route: 058
     Dates: start: 20190403, end: 20190406
  19. TAMSULOSINE [Concomitant]
     Active Substance: TAMSULOSIN HYDROCHLORIDE
     Indication: RENAL IMPAIRMENT
     Route: 048
     Dates: start: 20190322, end: 20190407
  20. LORAZEPAM. [Concomitant]
     Active Substance: LORAZEPAM
     Route: 048
     Dates: start: 20190409, end: 20190410
  21. FUROSEMIDE. [Concomitant]
     Active Substance: FUROSEMIDE
     Indication: POLYURIA
     Route: 042
     Dates: start: 20190323, end: 20190331
  22. METOCLOPRAMIDE. [Concomitant]
     Active Substance: METOCLOPRAMIDE
     Route: 042
     Dates: start: 20190408, end: 20190418
  23. RITUXIMAB. [Suspect]
     Active Substance: RITUXIMAB
     Indication: DIFFUSE LARGE B-CELL LYMPHOMA
     Dosage: DATE OF MOST RECENT DOSE OF RITUXIMAB PRIOR TO SAE ONSET: 28/MAR/2019 (746 MG)
     Route: 042
     Dates: start: 20190327
  24. METHYLPREDNISOLONE. [Suspect]
     Active Substance: METHYLPREDNISOLONE
     Indication: DIFFUSE LARGE B-CELL LYMPHOMA
     Dosage: ON DAYS 1-5 OF EVERY 21-DAY CYCLE FOR 6 CYCLES?DATE OF MOST RECENT DOSE OF PREDNISONE PRIOR TO SAE O
     Route: 042
     Dates: start: 20190327
  25. METHYLPREDNISOLONE. [Suspect]
     Active Substance: METHYLPREDNISOLONE
     Route: 042
     Dates: start: 20190404, end: 20190405
  26. RASBURICASE [Concomitant]
     Active Substance: RASBURICASE
     Route: 042
     Dates: start: 20190326, end: 20190326
  27. ENOXAPARIN [Concomitant]
     Active Substance: ENOXAPARIN
     Dosage: ANTITHROMBOTIC
     Route: 058
     Dates: start: 20190322, end: 20190322
  28. PURSENNID [Concomitant]
     Route: 048
     Dates: start: 20190403, end: 20190408
  29. ALDACTONE [Concomitant]
     Active Substance: SPIRONOLACTONE
     Dosage: DIURETIC
     Route: 048
     Dates: start: 20190323, end: 20190329
  30. FLUCONAZOLE. [Concomitant]
     Active Substance: FLUCONAZOLE
     Route: 042
     Dates: start: 20190411, end: 20190423
  31. POLATUZUMAB VEDOTIN. [Suspect]
     Active Substance: POLATUZUMAB VEDOTIN
     Indication: DIFFUSE LARGE B-CELL LYMPHOMA
     Dosage: DATE OF MOST RECENT DOSE OF POLATUZUMAB VEDOTIN (138 MG) PRIOR TO SAE ONSET: 28/MAR/2019
     Route: 042
     Dates: start: 20190328
  32. PLACEBO [Suspect]
     Active Substance: UNSPECIFIED INGREDIENT
     Indication: DIFFUSE LARGE B-CELL LYMPHOMA
     Dosage: DATE OF MOST RECENT DOSE PRIOR TO SAE ONSET ON 28/MAR/2019
     Route: 042
     Dates: start: 20190328
  33. ENOXAPARIN [Concomitant]
     Active Substance: ENOXAPARIN
     Dosage: ANTITHROMBOTIC
     Route: 058
     Dates: start: 20190411, end: 20190411
  34. DUTASTERIDE. [Concomitant]
     Active Substance: DUTASTERIDE
     Dosage: DIURETIC
     Route: 048
     Dates: start: 20190323, end: 20190408
  35. ALLOPURINOL. [Concomitant]
     Active Substance: ALLOPURINOL
     Dosage: ANTIGOUT
     Route: 048
     Dates: start: 20190322, end: 20190403
  36. LORAZEPAM. [Concomitant]
     Active Substance: LORAZEPAM
     Route: 048
     Dates: start: 20190408, end: 20190408
  37. FUROSEMIDE. [Concomitant]
     Active Substance: FUROSEMIDE
     Route: 042
     Dates: start: 20190413, end: 20190414
  38. PARACETAMOL [Concomitant]
     Active Substance: ACETAMINOPHEN
     Route: 048
     Dates: start: 20190327, end: 20190909
  39. BACTRIM [Concomitant]
     Active Substance: SULFAMETHOXAZOLE\TRIMETHOPRIM
     Indication: ANTIBIOTIC PROPHYLAXIS
     Dosage: 2 TABLETS
     Route: 048
     Dates: start: 20190329
  40. ERYTHROPOIETIN [Concomitant]
     Active Substance: ERYTHROPOIETIN
     Indication: ANAEMIA
     Route: 058
     Dates: start: 20190407
  41. ALPRAZOLAM. [Concomitant]
     Active Substance: ALPRAZOLAM
     Route: 048
     Dates: start: 20190408, end: 20190411
  42. OMEPRAZOLE. [Concomitant]
     Active Substance: OMEPRAZOLE
     Route: 042
     Dates: start: 20190405, end: 20190405
  43. MEROPENEM. [Concomitant]
     Active Substance: MEROPENEM
     Route: 042
     Dates: start: 20190408, end: 20190408
  44. CHLORPHENAMINE [Concomitant]
     Active Substance: CHLORPHENIRAMINE MALEATE
     Route: 042
     Dates: start: 20190327, end: 20190903
  45. RASBURICASE [Concomitant]
     Active Substance: RASBURICASE
     Indication: PROPHYLAXIS
     Route: 042
     Dates: start: 20190328, end: 20190329
  46. ALPRAZOLAM. [Concomitant]
     Active Substance: ALPRAZOLAM
     Dosage: PSYCHOLECTIC
     Route: 048
     Dates: start: 20190322, end: 20190407
  47. LEVOSULPIRIDE [Concomitant]
     Active Substance: LEVOSULPIRIDE
     Dosage: ANTINAUSEA
     Route: 048
     Dates: start: 20190430
  48. LANSOPRAZOLE. [Concomitant]
     Active Substance: LANSOPRAZOLE
     Indication: GASTROINTESTINAL DISORDER PROPHYLAXIS
     Route: 048
     Dates: start: 20190406, end: 20190408
  49. PIPERACILLIN AND TAZOBACTAM [Concomitant]
     Active Substance: PIPERACILLIN SODIUM\TAZOBACTAM SODIUM
     Route: 042
     Dates: start: 20190408, end: 20190414
  50. LAMIVUDINE. [Concomitant]
     Active Substance: LAMIVUDINE
     Dosage: PREVENTION OH HEPATITIS REACTIVATION
     Route: 048
     Dates: start: 20190322, end: 20190329
  51. FILGRASTIM [Concomitant]
     Active Substance: FILGRASTIM
     Dosage: PREVENTION OF NEUTROPENIA
     Route: 058
     Dates: start: 20190407, end: 20190409
  52. MACROGOL [Concomitant]
     Active Substance: POLYETHYLENE GLYCOLS
     Dosage: LAXATIVE
     Route: 048
     Dates: start: 20190403, end: 20190429
  53. ONDANSETRON [Concomitant]
     Active Substance: ONDANSETRON
     Route: 042
     Dates: start: 20190327, end: 20190330
  54. LEVOFLOXACINE [Concomitant]
     Active Substance: LEVOFLOXACIN
     Indication: PROPHYLAXIS
     Route: 042
     Dates: start: 20190406, end: 20190408

REACTIONS (2)
  - Ileus [Recovered/Resolved]
  - Febrile neutropenia [Recovered/Resolved]

NARRATIVE: CASE EVENT DATE: 20190407
